FAERS Safety Report 8814825 (Version 1)
Quarter: 2012Q4

REPORT INFORMATION
  Report Type: Spontaneous
  Country: GB (occurrence: None)
  Receive Date: 20120926
  Receipt Date: 20120926
  Transmission Date: 20130627
  Serious: Yes (Other)
  Sender: FDA-Public Use
  Company Number: GER/UKI/12/0025979

PATIENT
  Age: 32 Year
  Sex: Male
  Weight: 188 kg

DRUGS (1)
  1. FLUOXETINE [Suspect]
     Indication: ANXIETY
     Route: 048
     Dates: start: 20120515

REACTIONS (5)
  - Temperature intolerance [None]
  - Muscle spasms [None]
  - Hyperhidrosis [None]
  - Initial insomnia [None]
  - Middle insomnia [None]
